FAERS Safety Report 8482764-3 (Version None)
Quarter: 2012Q3

REPORT INFORMATION
  Report Type: 
  Country: None (occurrence: None)
  Receive Date: 20120702
  Receipt Date: 20120627
  Transmission Date: 20120928
  Serious: No
  Sender: FDA-Public Use
  Company Number: US-B.I. PHARMACEUTICALS,INC./RIDGEFIELD-2012-BP-14604BP

PATIENT
  Sex: Male

DRUGS (6)
  1. LIPITOR [Concomitant]
     Indication: BLOOD CHOLESTEROL INCREASED
  2. DILTIAZEM HYDROCHOLORIDE [Concomitant]
     Indication: SUPRAVENTRICULAR TACHYCARDIA
  3. ASPIRIN [Concomitant]
     Indication: ANTICOAGULANT THERAPY
  4. LISINOPRIL [Concomitant]
     Indication: BLOOD PRESSURE
  5. PRADAXA [Suspect]
     Indication: ATRIAL FIBRILLATION
     Dosage: 300 MG
     Route: 048
     Dates: start: 20120101
  6. NITROGLYCERIN TABLETS [Concomitant]
     Indication: CARDIAC DISORDER

REACTIONS (1)
  - RENAL IMPAIRMENT [None]
